FAERS Safety Report 10441786 (Version 1)
Quarter: 2014Q3

REPORT INFORMATION
  Report Type: Spontaneous
  Country: DE (occurrence: DE)
  Receive Date: 20140908
  Receipt Date: 20140908
  Transmission Date: 20150326
  Serious: Yes (Congenital Anomaly, Other)
  Sender: FDA-Public Use
  Company Number: DE-PFIZER INC-2014245772

PATIENT
  Age: 1 Day
  Sex: Female
  Weight: 3.5 kg

DRUGS (6)
  1. FOLIC ACID. [Concomitant]
     Active Substance: FOLIC ACID
     Indication: PROPHYLAXIS OF NEURAL TUBE DEFECT
     Dosage: 1.5. - 19.1. GESTATIONAL WEEK
     Route: 064
     Dates: start: 20120615, end: 20121015
  2. TAVOR [Suspect]
     Active Substance: LORAZEPAM
     Indication: DEPRESSION
     Dosage: 0.5 MG, 1X/DAY (0. - 10.3. GESTATIONAL WEEK)
     Route: 064
     Dates: start: 20120603, end: 20120815
  3. DOLANTINA [Suspect]
     Active Substance: MEPERIDINE HYDROCHLORIDE
     Indication: LABOUR PAIN
     Dosage: UNK
     Route: 064
     Dates: start: 20130320, end: 20130320
  4. MIRTAZAPINE. [Suspect]
     Active Substance: MIRTAZAPINE
     Indication: DEPRESSION
     Dosage: 45 MG, 1X/DAY (0. - 41.3. GESTATIONAL WEEK)
     Route: 064
     Dates: start: 20120603, end: 20130320
  5. TREVILOR RETARD [Suspect]
     Active Substance: VENLAFAXINE HYDROCHLORIDE
     Indication: DEPRESSION
     Dosage: 75 MG, 1X/DAY (2.5. - 10.3. GESTATIONAL WEEK)
     Route: 064
     Dates: start: 20120622, end: 20120815
  6. BUSCOPAN [Suspect]
     Active Substance: BUTYLSCOPOLAMINE BROMIDE
     Indication: LABOUR PAIN
     Dosage: UNK
     Route: 064
     Dates: start: 20130320, end: 20130320

REACTIONS (16)
  - Convulsion neonatal [Recovered/Resolved]
  - Cardiac arrest neonatal [Recovered/Resolved]
  - Neonatal asphyxia [Recovered/Resolved]
  - Brain oedema [None]
  - Maternal exposure during pregnancy [Unknown]
  - Hypotonia neonatal [Not Recovered/Not Resolved]
  - Encephalopathy neonatal [Recovered/Resolved]
  - Patent ductus arteriosus [Unknown]
  - Caesarean section [None]
  - Generalised tonic-clonic seizure [None]
  - Hypotonia [None]
  - Hypertonia [None]
  - Atrial septal defect [Unknown]
  - Premature rupture of membranes [None]
  - Obstructed labour [None]
  - Hypoxic-ischaemic encephalopathy [None]

NARRATIVE: CASE EVENT DATE: 20130320
